FAERS Safety Report 10653539 (Version 1)
Quarter: 2014Q4

REPORT INFORMATION
  Report Type: Spontaneous
  Country: US (occurrence: US)
  Receive Date: 20141216
  Receipt Date: 20141216
  Transmission Date: 20150529
  Serious: No
  Sender: FDA-Public Use
  Company Number: US-B.I. PHARMACEUTICALS,INC./RIDGEFIELD-2014-BI-59512BP

PATIENT
  Sex: Female
  Weight: 54.43 kg

DRUGS (1)
  1. CATAPRES-TTS [Suspect]
     Active Substance: CLONIDINE
     Indication: HYPERHIDROSIS
     Dosage: 0.1 MG
     Route: 061

REACTIONS (4)
  - Off label use [Not Recovered/Not Resolved]
  - Thermal burn [Unknown]
  - Rash [Unknown]
  - Hypersensitivity [Unknown]
